FAERS Safety Report 5432887-8 (Version None)
Quarter: 2007Q3

REPORT INFORMATION
  Report Type: 
  Country: None (occurrence: None)
  Receive Date: 20070831
  Receipt Date: 20070810
  Transmission Date: 20080115
  Serious: No
  Sender: FDA-Public Use
  Company Number: A0663187A

PATIENT
  Age: 46 Year
  Sex: Female
  Weight: 172 kg

DRUGS (1)
  1. ALLI [Suspect]
     Route: 048
     Dates: start: 20070706

REACTIONS (8)
  - ABDOMINAL DISTENSION [None]
  - DIARRHOEA [None]
  - HUNGER [None]
  - ILL-DEFINED DISORDER [None]
  - OEDEMA PERIPHERAL [None]
  - PHARMACEUTICAL PRODUCT COMPLAINT [None]
  - SWELLING FACE [None]
  - THERAPEUTIC RESPONSE UNEXPECTED [None]
